FAERS Safety Report 4282158-0 (Version None)
Quarter: 2004Q1

REPORT INFORMATION
  Report Type: 
  Country: None (occurrence: None)
  Receive Date: 20040130
  Receipt Date: 20021008
  Transmission Date: 20041129
  Serious: No
  Sender: FDA-Public Use
  Company Number: US-BRISTOL-MYERS SQUIBB COMPANY-12068995

PATIENT
  Sex: Female

DRUGS (2)
  1. ZERIT [Suspect]
     Indication: HIV INFECTION
     Route: 048
  2. KALETRA [Suspect]

REACTIONS (2)
  - HYPOAESTHESIA ORAL [None]
  - PARAESTHESIA ORAL [None]
